FAERS Safety Report 19261266 (Version 1)
Quarter: 2021Q2

REPORT INFORMATION
  Report Type: Spontaneous
  Country: US (occurrence: US)
  Receive Date: 20210515
  Receipt Date: 20210515
  Transmission Date: 20210717
  Serious: Yes (Other)
  Sender: FDA-Public Use
  Company Number: US-DRREDDYS-USA/USA/21/0135472

PATIENT
  Age: 76 Year
  Sex: Female

DRUGS (3)
  1. METRONIDAZOLE. [Suspect]
     Active Substance: METRONIDAZOLE
     Indication: COLITIS
  2. DICYCLOMINE HYDROCHLORIDE INJECTION [Suspect]
     Active Substance: DICYCLOMINE HYDROCHLORIDE
     Indication: COLITIS
  3. CEFTRIAXONE. [Suspect]
     Active Substance: CEFTRIAXONE
     Indication: COLITIS

REACTIONS (1)
  - Delirium [Recovered/Resolved]
